FAERS Safety Report 4353483-X (Version None)
Quarter: 2004Q2

REPORT INFORMATION
  Report Type: 
  Country: None (occurrence: None)
  Receive Date: 20040505
  Receipt Date: 20020430
  Transmission Date: 20050107
  Serious: Yes (Hospitalization, Disabling)
  Sender: FDA-Public Use
  Company Number: US-MERCK-0204USA03290

PATIENT
  Age: 47 Year
  Sex: Male
  Weight: 64 kg

DRUGS (2)
  1. ZOCOR [Suspect]
     Indication: HYPERCHOLESTEROLAEMIA
     Route: 048
     Dates: start: 19920107, end: 19920301
  2. ZOCOR [Suspect]
     Route: 048
     Dates: start: 19920301, end: 19980502

REACTIONS (25)
  - ADVERSE EVENT [None]
  - ARTHRALGIA [None]
  - ATTENTION DEFICIT/HYPERACTIVITY DISORDER [None]
  - CANDIDIASIS [None]
  - CEREBROVASCULAR ACCIDENT [None]
  - COMA [None]
  - DEPRESSION [None]
  - DIFFICULTY IN WALKING [None]
  - DYSPEPSIA [None]
  - EPICONDYLITIS [None]
  - FIBROMYALGIA [None]
  - FOOD POISONING [None]
  - GASTROINTESTINAL INFECTION [None]
  - INFLUENZA LIKE ILLNESS [None]
  - MUSCULOSKELETAL STIFFNESS [None]
  - MYALGIA [None]
  - NAIL PSORIASIS [None]
  - OEDEMA PERIPHERAL [None]
  - PAIN [None]
  - PAIN IN EXTREMITY [None]
  - PLANTAR FASCIITIS [None]
  - PRURITUS [None]
  - SLEEP DISORDER [None]
  - SUBDURAL HAEMATOMA [None]
  - SWELLING [None]
